FAERS Safety Report 10606396 (Version 1)
Quarter: 2014Q4

REPORT INFORMATION
  Report Type: Spontaneous
  Country: US (occurrence: None)
  Receive Date: 20141124
  Receipt Date: 20141124
  Transmission Date: 20150529
  Serious: No
  Sender: FDA-Public Use
  Company Number: None

PATIENT
  Age: 71 Year
  Sex: Female
  Weight: 104.33 kg

DRUGS (1)
  1. LEVOFLOXACIN. [Suspect]
     Active Substance: LEVOFLOXACIN
     Indication: CYSTITIS
     Route: 048
     Dates: start: 20141119, end: 20141121

REACTIONS (4)
  - Arthralgia [None]
  - Pain [None]
  - Oropharyngeal pain [None]
  - Peripheral swelling [None]

NARRATIVE: CASE EVENT DATE: 20141120
